FAERS Safety Report 7252339-2 (Version None)
Quarter: 2011Q1

REPORT INFORMATION
  Report Type: 
  Country: None (occurrence: None)
  Receive Date: 20110129
  Receipt Date: 20100114
  Transmission Date: 20110831
  Serious: No
  Sender: FDA-Public Use
  Company Number: US-ABBOTT-10P-163-0619195-00

PATIENT
  Sex: Female
  Weight: 106.24 kg

DRUGS (17)
  1. HUMIRA [Suspect]
     Indication: PSORIATIC ARTHROPATHY
     Route: 050
     Dates: start: 20061222, end: 20070529
  2. VITAMIN B-12 [Concomitant]
     Indication: GASTRIC BYPASS
     Dosage: 1 SHOT PER WEEK
     Dates: start: 20070201, end: 20070327
  3. SYNTHROID [Concomitant]
     Route: 048
     Dates: start: 20061222, end: 20070625
  4. FLUZONE [Concomitant]
     Indication: ANTIVIRAL PROPHYLAXIS
     Dates: start: 20061128, end: 20061128
  5. PRENATAL VITAMINS [Concomitant]
     Indication: VITAMIN SUPPLEMENTATION
     Dosage: 1 PILL QD
     Route: 048
     Dates: start: 20061102, end: 20070625
  6. CALCIUM W/VITAMIN D [Concomitant]
     Dosage: 2 PILLS QD
     Route: 048
     Dates: start: 20061215, end: 20070311
  7. VITAMIN B-12 [Concomitant]
     Dosage: 1 PILL DAILY
     Route: 048
     Dates: start: 20070601, end: 20070625
  8. CALCIUM W/VITAMIN D [Concomitant]
     Indication: PRODUCT USED FOR UNKNOWN INDICATION
     Dosage: 1 PILL QD
     Route: 048
     Dates: start: 20060929, end: 20061215
  9. VITAMIN B-12 [Concomitant]
     Indication: HYPOVITAMINOSIS
     Dosage: 1 SHOT
     Dates: start: 20070328, end: 20070625
  10. SYNTHROID [Concomitant]
     Indication: HYPOTHYROIDISM
     Route: 048
     Dates: start: 20060929, end: 20061222
  11. CARBOCAINE [Concomitant]
     Indication: TOOTH REPAIR
     Dosage: 1 SHOT IN 1 DAY
     Route: 050
     Dates: start: 20070501, end: 20070501
  12. HUMIRA [Suspect]
     Route: 050
     Dates: start: 20070530, end: 20070625
  13. MULTI-VITAMINS [Concomitant]
     Indication: VITAMIN SUPPLEMENTATION
     Dosage: 2 PILLS QD
     Dates: start: 20060929, end: 20061130
  14. CALCIUM W/VITAMIN D [Concomitant]
     Dosage: 3 PILLS QD
     Route: 048
     Dates: start: 20070312, end: 20070625
  15. HUMIRA [Suspect]
     Indication: PSORIASIS
     Route: 050
     Dates: start: 20060929, end: 20061222
  16. FOLTRIN [Concomitant]
     Indication: GASTRIC BYPASS
     Dosage: 1 PILL QD
     Route: 048
     Dates: start: 20060929, end: 20070625
  17. ROBITUSSIN [Concomitant]
     Indication: UPPER RESPIRATORY TRACT INFECTION
     Dosage: 3 TOTAL
     Route: 048
     Dates: start: 20070304, end: 20070307

REACTIONS (1)
  - UPPER RESPIRATORY TRACT INFECTION [None]
